FAERS Safety Report 6594079-9 (Version None)
Quarter: 2010Q1

REPORT INFORMATION
  Report Type: 
  Country: None (occurrence: None)
  Receive Date: 20100222
  Receipt Date: 20100212
  Transmission Date: 20100710
  Serious: Yes (Life-Threatening)
  Sender: FDA-Public Use
  Company Number: GXKR2010GB01824

PATIENT
  Age: 19 Year
  Sex: Female

DRUGS (3)
  1. MIRTAZAPINE [Suspect]
     Indication: DEPRESSION
     Dosage: 30 MG, UNK
     Route: 048
  2. FLUOXETINE [Concomitant]
  3. LORAZEPAM [Concomitant]

REACTIONS (1)
  - ANAPHYLACTIC REACTION [None]
